FAERS Safety Report 20964880 (Version 1)
Quarter: 2022Q2

REPORT INFORMATION
  Report Type: Spontaneous
  Country: US (occurrence: US)
  Receive Date: 20220616
  Receipt Date: 20220616
  Transmission Date: 20220721
  Serious: Yes (Hospitalization, Other)
  Sender: FDA-Public Use
  Company Number: US-JNJFOC-20220624294

PATIENT
  Age: 69 Year
  Sex: Male
  Weight: 83.990 kg

DRUGS (1)
  1. XARELTO [Suspect]
     Active Substance: RIVAROXABAN
     Indication: Product used for unknown indication
     Route: 048
     Dates: start: 20220422

REACTIONS (6)
  - Cardiac disorder [Recovering/Resolving]
  - Abdominal pain upper [Unknown]
  - Nausea [Unknown]
  - Asthenia [Unknown]
  - Constipation [Unknown]
  - Pallor [Unknown]

NARRATIVE: CASE EVENT DATE: 20220101
